FAERS Safety Report 4337291-1 (Version None)
Quarter: 2004Q2

REPORT INFORMATION
  Report Type: 
  Country: None (occurrence: None)
  Receive Date: 20040406
  Receipt Date: 20040309
  Transmission Date: 20050107
  Serious: Yes (Hospitalization)
  Sender: FDA-Public Use
  Company Number: 347027

PATIENT
  Sex: Male

DRUGS (6)
  1. FUZEON [Suspect]
     Dosage: 90 MG 2 PER DAY SUBCUTANEOUS
     Route: 058
     Dates: start: 20030215
  2. COMBIVIR [Concomitant]
  3. KALETRA [Concomitant]
  4. SAQUINAVIR (SAQUINAVIR MESYLATE) [Concomitant]
  5. BACTRIM [Concomitant]
  6. DAPSONE [Concomitant]

REACTIONS (6)
  - INJECTION SITE PAIN [None]
  - INJECTION SITE REACTION [None]
  - MEDICATION ERROR [None]
  - NO ADVERSE EFFECT [None]
  - PNEUMOCYSTIS CARINII PNEUMONIA [None]
  - WEIGHT DECREASED [None]
